FAERS Safety Report 6314489-4 (Version None)
Quarter: 2009Q3

REPORT INFORMATION
  Report Type: 
  Country: None (occurrence: None)
  Receive Date: 20090819
  Receipt Date: 20090814
  Transmission Date: 20100115
  Serious: Yes (Hospitalization)
  Sender: FDA-Public Use
  Company Number: AU-ASTRAZENECA-2009SE08389

PATIENT
  Age: 697 Month
  Sex: Female

DRUGS (10)
  1. ARIMIDEX [Suspect]
     Indication: BREAST CANCER
     Route: 048
     Dates: start: 20071201
  2. SPINAL BLOCK [Concomitant]
  3. ANAESTHETIC [Concomitant]
  4. UNSPECIFIED PAIN RELIEF [Concomitant]
  5. MORPHINE [Concomitant]
  6. OXYCONTIN [Concomitant]
  7. ENDONE [Concomitant]
  8. ACETAMINOPHEN [Concomitant]
  9. CIPRAFLOXIN [Concomitant]
  10. ISOPTIN [Concomitant]
     Indication: PALPITATIONS

REACTIONS (6)
  - ARTHRITIS [None]
  - HEPATOTOXICITY [None]
  - HOT FLUSH [None]
  - INSOMNIA [None]
  - KNEE ARTHROPLASTY [None]
  - PALPITATIONS [None]
